FAERS Safety Report 8073149-2 (Version None)
Quarter: 2012Q1

REPORT INFORMATION
  Report Type: 
  Country: None (occurrence: None)
  Receive Date: 20120126
  Receipt Date: 20120117
  Transmission Date: 20120608
  Serious: Yes (Hospitalization)
  Sender: FDA-Public Use
  Company Number: AU-JNJFOC-20120106653

PATIENT
  Sex: Male
  Weight: 92 kg

DRUGS (2)
  1. ABIRATERONE ACETATE [Suspect]
     Indication: PROSTATE CANCER METASTATIC
     Dosage: 250 MG
     Route: 048
     Dates: start: 20111117
  2. ABIRATERONE ACETATE [Suspect]
     Route: 048

REACTIONS (3)
  - PAIN [None]
  - DECREASED APPETITE [None]
  - FATIGUE [None]
